FAERS Safety Report 21122584 (Version 3)
Quarter: 2022Q3

REPORT INFORMATION
  Report Type: Spontaneous
  Country: CA (occurrence: CA)
  Receive Date: 20220723
  Receipt Date: 20220901
  Transmission Date: 20221027
  Serious: Yes (Hospitalization, Other)
  Sender: FDA-Public Use
  Company Number: CA-CELLTRION INC.-2022CA009034

PATIENT

DRUGS (6)
  1. INFLECTRA [Suspect]
     Active Substance: INFLIXIMAB-DYYB
     Indication: Crohn^s disease
     Dosage: 5 MG/KG CYCLIC, INDUCTION WEEKS 0, 2, 6 THEN Q 8 WEEKS
     Route: 042
     Dates: start: 20220120
  2. INFLECTRA [Suspect]
     Active Substance: INFLIXIMAB-DYYB
     Dosage: 5 MG/KG, WEEKS 0,2,6 THEN EVERY 8 WEEKS
     Route: 042
     Dates: start: 20220303
  3. INFLECTRA [Suspect]
     Active Substance: INFLIXIMAB-DYYB
     Dosage: 5 MG/KG, WEEKS 0,2,6 THEN EVERY 8 WEEKS
     Route: 042
     Dates: start: 20220517
  4. INFLECTRA [Suspect]
     Active Substance: INFLIXIMAB-DYYB
     Dosage: 5 MG/KG, WEEKS 0,2,6 THEN EVERY 8 WEEKS
     Route: 042
     Dates: start: 20220517
  5. INFLECTRA [Suspect]
     Active Substance: INFLIXIMAB-DYYB
     Dosage: 5 MG/KG, WEEKS 0,2,6 THEN EVERY 8 WEEKS
     Route: 042
     Dates: start: 20220712
  6. MESALAMINE [Concomitant]
     Active Substance: MESALAMINE
     Dosage: 1 DF DOSAGE NOT AVAILABLE
     Dates: start: 202110

REACTIONS (9)
  - Haematochezia [Recovering/Resolving]
  - Diarrhoea [Recovering/Resolving]
  - Therapeutic product effect incomplete [Unknown]
  - Drug specific antibody present [Not Recovered/Not Resolved]
  - Inappropriate schedule of product administration [Unknown]
  - COVID-19 [Unknown]
  - Condition aggravated [Not Recovered/Not Resolved]
  - Helicobacter infection [Unknown]
  - Drug level below therapeutic [Not Recovered/Not Resolved]

NARRATIVE: CASE EVENT DATE: 20220101
